FAERS Safety Report 5672802-5 (Version None)
Quarter: 2008Q1

REPORT INFORMATION
  Report Type: 
  Country: None (occurrence: None)
  Receive Date: 20080319
  Receipt Date: 20070911
  Transmission Date: 20080703
  Serious: Yes (Hospitalization)
  Sender: FDA-Public Use
  Company Number: US-KINGPHARMUSA00001-K200701167

PATIENT

DRUGS (2)
  1. ALTACE [Suspect]
  2. REVLIMID [Suspect]
     Indication: MULTIPLE MYELOMA
     Dosage: 25 MG, QD
     Route: 048
     Dates: start: 20070626

REACTIONS (2)
  - COUGH [None]
  - PYREXIA [None]
